FAERS Safety Report 12511957 (Version 3)
Quarter: 2017Q1

REPORT INFORMATION
  Report Type: Spontaneous
  Country: US (occurrence: US)
  Receive Date: 20160630
  Receipt Date: 20170313
  Transmission Date: 20170428
  Serious: Yes (Death, Hospitalization)
  Sender: FDA-Public Use
  Company Number: US-JNJFOC-20160524593

PATIENT
  Age: 75 Year
  Sex: Male

DRUGS (4)
  1. ASPIRIN. [Suspect]
     Active Substance: ASPIRIN
     Indication: PRODUCT USED FOR UNKNOWN INDICATION
     Route: 065
     Dates: end: 201503
  2. LASIX [Concomitant]
     Active Substance: FUROSEMIDE
     Indication: PRODUCT USED FOR UNKNOWN INDICATION
     Route: 065
  3. XARELTO [Suspect]
     Active Substance: RIVAROXABAN
     Indication: THROMBOSIS
     Dosage: VARYING DOSES OF 10-15 MG
     Route: 048
     Dates: start: 201410, end: 201503
  4. XARELTO [Suspect]
     Active Substance: RIVAROXABAN
     Indication: DEEP VEIN THROMBOSIS
     Dosage: VARYING DOSES OF 10-15 MG
     Route: 048
     Dates: start: 201410, end: 201503

REACTIONS (15)
  - Arteriosclerosis coronary artery [Fatal]
  - Sepsis [Unknown]
  - Anastomotic haemorrhage [Recovered/Resolved]
  - Basal ganglia infarction [Unknown]
  - Incorrect dose administered [Unknown]
  - Internal haemorrhage [Unknown]
  - Respiratory failure [Fatal]
  - Procedural haemorrhage [Recovered/Resolved]
  - Acute kidney injury [Unknown]
  - Off label use [Unknown]
  - Coagulopathy [Unknown]
  - Intestinal ischaemia [Recovering/Resolving]
  - Post procedural haemorrhage [Unknown]
  - Myocardial infarction [Unknown]
  - Wrong technique in product usage process [Unknown]

NARRATIVE: CASE EVENT DATE: 20150228
